FAERS Safety Report 9416848 (Version 2)
Quarter: 2013Q4

REPORT INFORMATION
  Report Type: Spontaneous
  Country: US (occurrence: US)
  Receive Date: 20130724
  Receipt Date: 20131101
  Transmission Date: 20140711
  Serious: Yes (Other)
  Sender: FDA-Public Use
  Company Number: US-PFIZER INC-2013214971

PATIENT
  Sex: Female

DRUGS (1)
  1. ATORVASTATIN CALCIUM [Suspect]
     Dosage: 10 MG, 1X/DAY

REACTIONS (7)
  - Confusional state [Unknown]
  - Fatigue [Unknown]
  - Pollakiuria [Unknown]
  - Memory impairment [Unknown]
  - Depression [Unknown]
  - Decreased appetite [Unknown]
  - Dizziness [Unknown]
